FAERS Safety Report 8991019 (Version 1)
Quarter: 2012Q4

REPORT INFORMATION
  Report Type: 
  Country: DK (occurrence: DK)
  Receive Date: 20121231
  Receipt Date: 20121231
  Transmission Date: 20130627
  Serious: Yes (Other)
  Sender: FDA-Public Use
  Company Number: DK-UCBSA-072276

PATIENT
  Age: 43 Year
  Sex: Female
  Weight: 50 kg

DRUGS (2)
  1. CIMZIA [Suspect]
     Indication: RHEUMATOID ARTHRITIS
     Dates: start: 20120131, end: 20120912
  2. METHOTREXATE [Concomitant]
     Route: 048
     Dates: start: 20110822, end: 20120912

REACTIONS (1)
  - Sensory disturbance [Recovering/Resolving]
